FAERS Safety Report 18587418 (Version 1)
Quarter: 2020Q4

REPORT INFORMATION
  Report Type: Spontaneous
  Country: IT (occurrence: IT)
  Receive Date: 20201207
  Receipt Date: 20201207
  Transmission Date: 20210114
  Serious: Yes (Hospitalization)
  Sender: FDA-Public Use
  Company Number: IT-TEVA-2020-IT-1854777

PATIENT
  Age: 69 Year
  Sex: Female

DRUGS (6)
  1. MYOCET 50 MG POWDER, DISPERSION AND SOLVENT FOR CONCENTRATE FOR DISPER [Suspect]
     Active Substance: DOXORUBICIN
     Indication: NON-HODGKIN^S LYMPHOMA
     Dosage: UNIT DOSE : 57 MG
     Route: 042
     Dates: start: 20200420, end: 20200706
  2. ENDOXAN BAXTER 500 MG POLVERE PER SOLUZIONE INIETTABILE [Suspect]
     Active Substance: CYCLOPHOSPHAMIDE
     Indication: NON-HODGKIN^S LYMPHOMA
     Dosage: UNIT DOSE : 100 MG
     Route: 042
     Dates: start: 20200420, end: 20200706
  3. TRUXIMA [Suspect]
     Active Substance: RITUXIMAB-ABBS
     Indication: NON-HODGKIN^S LYMPHOMA
     Dosage: UNIT DOSE : 690 MG
     Route: 042
     Dates: start: 20200420, end: 20200706
  4. SOLDESAM [Concomitant]
     Active Substance: DEXAMETHASONE
     Indication: TRANSFUSION REACTION
     Dosage: UNIT DOSE : 8 MG
     Route: 042
     Dates: start: 20200420, end: 20200706
  5. VINCRISTINA TEVA ITALIA [Suspect]
     Active Substance: VINCRISTINE
     Indication: NON-HODGKIN^S LYMPHOMA
     Dosage: UNIT DOSE : 1.5 MG
     Route: 042
     Dates: start: 20200420, end: 20200706
  6. PALONOSETRON HYDROCHLORIDE. [Concomitant]
     Active Substance: PALONOSETRON HYDROCHLORIDE
     Indication: PROPHYLAXIS OF NAUSEA AND VOMITING
     Dosage: UNIT DOSE : 250 MCG
     Route: 042
     Dates: start: 20200420, end: 20200706

REACTIONS (1)
  - Neutropenia [Recovered/Resolved]

NARRATIVE: CASE EVENT DATE: 20200610
